FAERS Safety Report 10541144 (Version 1)
Quarter: 2014Q4

REPORT INFORMATION
  Report Type: Spontaneous
  Country: US (occurrence: None)
  Receive Date: 20141010
  Receipt Date: 20141010
  Transmission Date: 20150529
  Serious: No
  Sender: FDA-Public Use
  Company Number: 163-POMAL-14052366

PATIENT
  Age: 46 Year
  Sex: Male
  Weight: 151.05 kg

DRUGS (20)
  1. IMODIUM (LOPERAMIDE) (UNKNOWN) [Concomitant]
  2. WELLBUTRIN (BUPROPION HYDROCHLORIDE) (UNKNOWN) [Concomitant]
  3. BUSPAR (BUSPIRO9NE HYDROCHLORIDE) (UNKNOWN) [Concomitant]
  4. COMPAZINE (PROCHLORPERAZINE EDISYLATE) (UNKNOWN) [Concomitant]
  5. ANASPAZ (HYOSCYAMINE SULFATE) (UNKNOWN) [Concomitant]
  6. ATERAX (HYDROXYZINE HYDROCHLORIDE) (UNKNOWN) [Concomitant]
  7. ZYRTEC (CETRIZINE HYDROCHLORIDE) (UNKNOWN) [Concomitant]
  8. SINGULAIR (MONTELUKAST) (UNKNOWN) [Concomitant]
  9. DEXAMETHASONE (DEXAMETHASONE) (UNKNOWN) [Concomitant]
     Active Substance: DEXAMETHASONE
  10. CLONOPIN (CLONAZEPAM) (UNKNOWN) [Concomitant]
  11. POMALYST [Suspect]
     Active Substance: POMALIDOMIDE
     Indication: AMYLOIDOSIS
     Dosage: 3 MG, 28 IN 28 D
     Route: 048
     Dates: start: 20140409
  12. XARELTO (RIVAROXABAN) (UNKNOWN) [Concomitant]
  13. COUMADIN [Concomitant]
     Active Substance: WARFARIN SODIUM
  14. ADDERALL (OBETROL) (UNKNOWN) [Concomitant]
  15. APIDRA (INSULIN GLULISINE) (UNKNOWN) [Concomitant]
  16. ATIVAN [Concomitant]
     Active Substance: LORAZEPAM
  17. BACTRIM DS (BACTRIM) (UNKNOWN) [Concomitant]
  18. ZOLOFT (SERTRALINE HYDROCHLORIDE) (UNKNOWN) [Concomitant]
  19. TYLENOL (PARACETAMOL) (UNKNOWN) [Concomitant]
  20. REMERON (MIRTAZAPINE) (UNKNOWN) [Concomitant]

REACTIONS (8)
  - Dyspepsia [None]
  - Muscle spasms [None]
  - Insomnia [None]
  - Nausea [None]
  - Sleep disorder [None]
  - Constipation [None]
  - Headache [None]
  - Diarrhoea [None]

NARRATIVE: CASE EVENT DATE: 2014
